FAERS Safety Report 17342923 (Version 1)
Quarter: 2020Q1

REPORT INFORMATION
  Report Type: Spontaneous
  Country: US (occurrence: US)
  Receive Date: 20200129
  Receipt Date: 20200129
  Transmission Date: 20200409
  Serious: No
  Sender: FDA-Public Use
  Company Number: US-ALLERGAN-1910848US

PATIENT
  Age: 55 Year
  Sex: Male
  Weight: 88.44 kg

DRUGS (1)
  1. BOTOX [Suspect]
     Active Substance: ONABOTULINUMTOXINA
     Indication: MIGRAINE
     Dosage: UNK, SINGLE
     Route: 030
     Dates: start: 201704, end: 201704

REACTIONS (16)
  - Peripheral swelling [Recovered/Resolved]
  - Eating disorder [Recovering/Resolving]
  - Asthenia [Recovering/Resolving]
  - Loss of consciousness [Unknown]
  - Hypokinesia [Recovering/Resolving]
  - Insomnia [Unknown]
  - Nausea [Not Recovered/Not Resolved]
  - Bladder dysfunction [Recovering/Resolving]
  - Intracranial pressure increased [Unknown]
  - Ligament rupture [Recovering/Resolving]
  - Pyrexia [Recovering/Resolving]
  - Botulism [Recovering/Resolving]
  - Arthralgia [Recovering/Resolving]
  - Hypotonia [Recovering/Resolving]
  - Weight decreased [Recovering/Resolving]
  - Dyspnoea [Recovering/Resolving]

NARRATIVE: CASE EVENT DATE: 2017
